FAERS Safety Report 10174997 (Version 1)
Quarter: 2014Q2

REPORT INFORMATION
  Report Type: Report from Study
  Country: US (occurrence: US)
  Receive Date: 20140515
  Receipt Date: 20140515
  Transmission Date: 20141212
  Serious: Yes (Death)
  Sender: FDA-Public Use
  Company Number: US-ACTELION-A-NJ2014-98706

PATIENT
  Age: 55 Year
  Sex: Female

DRUGS (1)
  1. VELETRI [Suspect]
     Indication: PULMONARY ARTERIAL HYPERTENSION
     Dosage: 23.5 NG/KG, PER MIN
     Route: 042
     Dates: start: 20121205

REACTIONS (1)
  - Death [Fatal]
